FAERS Safety Report 17709347 (Version 1)
Quarter: 2020Q2

REPORT INFORMATION
  Report Type: Spontaneous
  Country: CN (occurrence: CN)
  Receive Date: 20200426
  Receipt Date: 20200426
  Transmission Date: 20200714
  Serious: Yes (Other)
  Sender: FDA-Public Use
  Company Number: CN-BAXTER-2020BAX008247

PATIENT
  Age: 91 Year
  Sex: Male
  Weight: 50 kg

DRUGS (23)
  1. SAIMALING [LATAMOXEF SODIUM] [Suspect]
     Active Substance: LATAMOXEF DISODIUM
     Indication: PNEUMONITIS
  2. 0.9% SODIUM CHLORIDE INJECTION [Suspect]
     Active Substance: SODIUM CHLORIDE
     Route: 041
     Dates: start: 20200403
  3. POTASSIUM CHLORIDE. [Suspect]
     Active Substance: POTASSIUM CHLORIDE
     Indication: ELECTROLYTE SUBSTITUTION THERAPY
     Dosage: COMPOUND AMINO ACID INJECTION (18AA-II) 250ML + POTASSIUM CHLORIDE INJECTION 7ML
     Route: 041
     Dates: start: 20200403
  4. 0.9% SODIUM CHLORIDE INJECTION [Suspect]
     Active Substance: SODIUM CHLORIDE
     Indication: IRRIGATION THERAPY
     Route: 041
     Dates: start: 20200403
  5. 0.9% SODIUM CHLORIDE INJECTION [Suspect]
     Active Substance: SODIUM CHLORIDE
     Route: 041
     Dates: start: 20200403
  6. 0.9% SODIUM CHLORIDE INJECTION [Suspect]
     Active Substance: SODIUM CHLORIDE
     Route: 041
     Dates: start: 20200403
  7. SAIMALING [LATAMOXEF SODIUM] [Suspect]
     Active Substance: LATAMOXEF DISODIUM
     Indication: ANTI-INFECTIVE THERAPY
     Dosage: 0.9% SODIUM CHLORIDE INJECTION 100ML + LATAMOXEF SODIUM FOR INJECTION
     Route: 041
     Dates: start: 20200403, end: 20200412
  8. SODIUM CHLORIDE. [Suspect]
     Active Substance: SODIUM CHLORIDE
     Dosage: 0.9% SODIUM CHLORIDE INJECTION 100ML + LATAMOXEF SODIUM FOR INJECTION (SKIN TEST-) Q12H
     Route: 041
     Dates: start: 20200403, end: 20200412
  9. 10% GLUCOSE  INJECTION [Suspect]
     Active Substance: DEXTROSE
     Indication: NUTRITIONAL SUPPLEMENTATION
     Dosage: 10% GLUCOSE INJECTION 300ML + POTASSIUM CHLORIDE INJECTION 7ML
     Route: 041
     Dates: start: 20200403
  10. DEXAMETHASONE SODIUM PHOSPHATE. [Suspect]
     Active Substance: DEXAMETHASONE SODIUM PHOSPHATE
     Indication: ANTIALLERGIC THERAPY
     Dosage: DIPHENHYDRAMINE INJECTION 20 MG IM + DEXAMETHASONE SODIUM PHOSPHATE INJECTION 2 MG
     Route: 041
     Dates: start: 20200403
  11. DEXAMETHASONE SODIUM PHOSPHATE. [Suspect]
     Active Substance: DEXAMETHASONE SODIUM PHOSPHATE
     Route: 042
     Dates: start: 20200403
  12. VITAMIN C [Suspect]
     Active Substance: ASCORBIC ACID
     Indication: FLUID REPLACEMENT
     Dosage: 5% GLUCOSE INJECTION 500ML + POTASSIUM CHLORIDE INJECTION 15ML + VITAMIN C INJECTION 10 ML
     Route: 041
     Dates: start: 20200403
  13. SODIUM CHLORIDE. [Suspect]
     Active Substance: SODIUM CHLORIDE
     Indication: MEDICATION DILUTION
     Dosage: 0.9% SODIUM CHLORIDE INJECTION 100ML + LANSOPRAZOLE FOR INJECTION
     Route: 041
     Dates: start: 20200403, end: 20200412
  14. 5% GLUCOSE  INJECTION [Suspect]
     Active Substance: DEXTROSE
     Indication: FLUID REPLACEMENT
     Dosage: 5% GLUCOSE INJECTION 500ML + POTASSIUM CHLORIDE INJECTION 15ML + VITAMIN C INJECTION 10 ML
     Route: 041
     Dates: start: 20200403
  15. LANSOPRAZOLE. [Suspect]
     Active Substance: LANSOPRAZOLE
     Indication: GASTRITIS
     Dosage: 0.9% SODIUM CHLORIDE INJECTION 100ML + LANSOPRAZOLE FOR INJECTION 30MG
     Route: 041
     Dates: start: 20200403, end: 20200412
  16. GLUCOSE [Suspect]
     Active Substance: DEXTROSE
     Indication: MEDICATION DILUTION
     Dosage: 5% GLUCOSE INJECTION 250ML + SHENGMAI INJECTION 50ML
     Route: 042
     Dates: start: 20200403, end: 20200412
  17. 0.9% SODIUM CHLORIDE INJECTION [Suspect]
     Active Substance: SODIUM CHLORIDE
     Route: 041
     Dates: start: 20200403
  18. MEDIUM AND LONG CHAIN FAT EMULSION INJECTION (C8-24) [Suspect]
     Active Substance: GLYCERIN\MEDIUM-CHAIN TRIGLYCERIDES\PHOSPHOLIPID\SOYBEAN OIL
     Indication: NUTRITIONAL SUPPLEMENTATION
     Route: 041
     Dates: start: 20200403, end: 20200403
  19. POTASSIUM CHLORIDE. [Suspect]
     Active Substance: POTASSIUM CHLORIDE
     Indication: FLUID REPLACEMENT
     Dosage: 5% GLUCOSE INJECTION 500ML + POTASSIUM CHLORIDE INJECTION 15ML + VITAMIN C INJECTION 10ML
     Route: 041
     Dates: start: 20200403
  20. POTASSIUM CHLORIDE. [Suspect]
     Active Substance: POTASSIUM CHLORIDE
     Dosage: 10% GLUCOSE INJECTION 300ML + POTASSIUM CHLORIDE INJECTION 7ML
     Route: 041
     Dates: start: 20200403
  21. COMPOUND AMINO ACID (18AA-II) [Suspect]
     Active Substance: AMINO ACIDS
     Indication: NUTRITIONAL SUPPLEMENTATION
     Dosage: COMPOUND AMINO ACID INJECTION (18AA-II) 250ML + POTASSIUM CHLORIDE INJECTION 7ML
     Route: 041
     Dates: start: 20200403
  22. DIPHENHYDRAMINE. [Suspect]
     Active Substance: DIPHENHYDRAMINE
     Indication: ANTIALLERGIC THERAPY
     Dosage: DIPHENHYDRAMINE INJECTION 20 MG IM + DEXAMETHASONE SODIUM PHOSPHATE INJECTION 2 MG
     Route: 030
     Dates: start: 20200403
  23. 0.9% SODIUM CHLORIDE INJECTION [Suspect]
     Active Substance: SODIUM CHLORIDE
     Route: 041
     Dates: start: 20200403

REACTIONS (2)
  - Pyrexia [Recovered/Resolved]
  - Chills [Recovered/Resolved]

NARRATIVE: CASE EVENT DATE: 20200403
